FAERS Safety Report 8263436-7 (Version None)
Quarter: 2012Q2

REPORT INFORMATION
  Report Type: 
  Country: None (occurrence: None)
  Receive Date: 20120405
  Receipt Date: 20120402
  Transmission Date: 20120825
  Serious: Yes (Hospitalization)
  Sender: FDA-Public Use
  Company Number: IE-AMGEN-IRLSP2011053147

PATIENT
  Sex: Female

DRUGS (9)
  1. NEULASTA [Suspect]
     Indication: CHEMOTHERAPY
     Dosage: 6 MG, 3 TIMES/WK
     Route: 058
     Dates: start: 20110921
  2. DOCETAXEL [Concomitant]
     Indication: BREAST CANCER
     Dosage: 75 MG/M2, Q3WK
  3. LOSEC                              /00661201/ [Concomitant]
     Dosage: UNK UNK, PRN
  4. ZOFRAN [Concomitant]
     Dosage: 8 MG, BID
  5. KIN [Concomitant]
  6. DEXAMETHASONE [Concomitant]
     Dosage: 4 MG, BID
  7. CYCLOPHOSPHAMIDE [Concomitant]
     Indication: BREAST CANCER
     Dosage: 600 MG/ML, Q3WK
  8. MYCOSTATIN [Concomitant]
  9. VALOID                             /00014902/ [Concomitant]
     Dosage: 50 MG, PRN

REACTIONS (7)
  - ORAL INFECTION [None]
  - BONE PAIN [None]
  - PHARYNGITIS [None]
  - BACK PAIN [None]
  - NAUSEA [None]
  - ABDOMINAL DISCOMFORT [None]
  - FATIGUE [None]
